FAERS Safety Report 5930992-0 (Version None)
Quarter: 2008Q4

REPORT INFORMATION
  Report Type: 
  Country: None (occurrence: None)
  Receive Date: 20081022
  Receipt Date: 20081007
  Transmission Date: 20090506
  Serious: Yes (Other)
  Sender: FDA-Public Use
  Company Number: ENT 2008-0136

PATIENT
  Age: 71 Year
  Sex: Female

DRUGS (8)
  1. COMTAN [Suspect]
     Indication: PARKINSON'S DISEASE
     Dosage: 300 MG (100 MG, 3 IN 1 D)
     Route: 048
     Dates: start: 20080408, end: 20080526
  2. DIAZEPAM [Concomitant]
  3. PERMAX [Concomitant]
  4. NEODOPASOL [Concomitant]
  5. LUDIOMIL [Concomitant]
  6. METLIGINE [Concomitant]
  7. SELBEX [Concomitant]
  8. DOPS [Concomitant]

REACTIONS (5)
  - CHROMATURIA [None]
  - DYSKINESIA [None]
  - EATING DISORDER [None]
  - FALL [None]
  - SUDDEN ONSET OF SLEEP [None]
